FAERS Safety Report 10871274 (Version 2)
Quarter: 2016Q1

REPORT INFORMATION
  Report Type: Spontaneous
  Country: GB (occurrence: GB)
  Receive Date: 20150223
  Receipt Date: 20160118
  Transmission Date: 20160525
  Serious: Yes (Death, Hospitalization)
  Sender: FDA-Public Use
  Company Number: 2751321

PATIENT
  Age: 79 Year
  Sex: Female

DRUGS (13)
  1. METOCLOPRAMIDE. [Concomitant]
     Active Substance: METOCLOPRAMIDE
     Indication: PROPHYLAXIS
     Dosage: STOPPED
     Route: 048
  2. CYCLOPHOSPHAMIDE. [Suspect]
     Active Substance: CYCLOPHOSPHAMIDE
     Indication: B-CELL LYMPHOMA
     Dosage: DOSE NOT KNOWN
     Route: 065
     Dates: start: 20141110, end: 20141226
  3. ALLOPURINOL. [Suspect]
     Active Substance: ALLOPURINOL
     Indication: PROPHYLAXIS
     Dosage: DOSE UNKNOWN
     Route: 048
     Dates: start: 20141110, end: 20150104
  4. ONDANSETRON [Concomitant]
     Active Substance: ONDANSETRON
     Indication: PROPHYLAXIS
     Dosage: STOPPED
     Route: 048
  5. FLUCONAZOLE. [Concomitant]
     Active Substance: FLUCONAZOLE
     Indication: PROPHYLAXIS
     Dosage: DOSE NOT KNOWN, DATE STOPPED NOT KNOWN
     Route: 048
     Dates: start: 20141110
  6. ACICLOVIR [Concomitant]
     Active Substance: ACYCLOVIR
     Indication: PROPHYLAXIS
     Dosage: DOSE NOT KNOWN
     Route: 048
     Dates: start: 20141110, end: 20141224
  7. CITALOPRAM [Concomitant]
     Active Substance: CITALOPRAM HYDROBROMIDE
     Indication: PRODUCT USED FOR UNKNOWN INDICATION
     Dosage: ONGOING
     Route: 048
  8. LOSARTAN. [Concomitant]
     Active Substance: LOSARTAN
     Indication: PRODUCT USED FOR UNKNOWN INDICATION
     Dosage: ONGOING
     Route: 048
  9. PREDNISOLONE. [Suspect]
     Active Substance: PREDNISOLONE
     Indication: B-CELL LYMPHOMA
     Dosage: DOSE NOT KNOWN
     Route: 065
     Dates: start: 20141110, end: 20141226
  10. COTRIMOXAZOLE [Concomitant]
     Active Substance: SULFAMETHOXAZOLE\TRIMETHOPRIM
     Indication: PROPHYLAXIS
     Dosage: DOSE NOT KNOWN, DATE STOPPED NOT KNOWN
     Route: 048
     Dates: start: 20141110
  11. RITUXIMAB [Suspect]
     Active Substance: RITUXIMAB
     Indication: B-CELL LYMPHOMA
     Dosage: DOSE NOT KNOWN
     Route: 065
     Dates: start: 20141110, end: 20141226
  12. DAPSONE. [Concomitant]
     Active Substance: DAPSONE
     Indication: PROPHYLAXIS
     Dosage: DOSAGE AND DATE STOPPED UNKNOWN
     Route: 048
     Dates: start: 20141224
  13. VINCRISTINE SULFATE. [Suspect]
     Active Substance: VINCRISTINE SULFATE
     Indication: B-CELL LYMPHOMA
     Dosage: DOSE NOT KNOWN
     Route: 065
     Dates: start: 20141110, end: 20141226

REACTIONS (3)
  - Drug eruption [Not Recovered/Not Resolved]
  - Erythema multiforme [Fatal]
  - Rash [Not Recovered/Not Resolved]

NARRATIVE: CASE EVENT DATE: 20141231
